FAERS Safety Report 5248146-2 (Version None)
Quarter: 2007Q1

REPORT INFORMATION
  Report Type: 
  Country: None (occurrence: None)
  Receive Date: 20070227
  Receipt Date: 20060317
  Transmission Date: 20070707
  Serious: No
  Sender: FDA-Public Use
  Company Number: US-BRISTOL-MYERS SQUIBB COMPANY-13318993

PATIENT
  Age: 30 Year
  Sex: Female
  Weight: 132 kg

DRUGS (1)
  1. METFORMIN HCL [Suspect]
     Indication: DIABETES MELLITUS MANAGEMENT
     Route: 048
     Dates: start: 20060301, end: 20060317

REACTIONS (3)
  - ABDOMINAL PAIN UPPER [None]
  - DIZZINESS [None]
  - MYALGIA [None]
